FAERS Safety Report 14450292 (Version 3)
Quarter: 2018Q2

REPORT INFORMATION
  Report Type: Report from Study
  Country: US (occurrence: US)
  Receive Date: 20180129
  Receipt Date: 20180416
  Transmission Date: 20180711
  Serious: No
  Sender: FDA-Public Use
  Company Number: US-ROCHE-2061768

PATIENT
  Age: 55 Year
  Sex: Female

DRUGS (2)
  1. OCREVUS [Suspect]
     Active Substance: OCRELIZUMAB
     Dosage: SECOND ROUND
     Route: 042
     Dates: start: 20171120
  2. OCREVUS [Suspect]
     Active Substance: OCRELIZUMAB
     Indication: RELAPSING-REMITTING MULTIPLE SCLEROSIS
     Dosage: PRESCRIBED WITH INTRAVENOUS OCRELIZUMAB INFUSION 300 MG ON DAY 1 AND 300 MG ON DAY 15 FOLLOWED BY 60
     Route: 042
     Dates: start: 20171106

REACTIONS (3)
  - Nasopharyngitis [Unknown]
  - Tachycardia [Unknown]
  - Bronchitis [Unknown]

NARRATIVE: CASE EVENT DATE: 20171106
